FAERS Safety Report 10525781 (Version 2)
Quarter: 2015Q3

REPORT INFORMATION
  Report Type: Report from Study
  Country: JP (occurrence: JP)
  Receive Date: 20141017
  Receipt Date: 20150715
  Transmission Date: 20151125
  Serious: Yes (Other)
  Sender: FDA-Public Use
  Company Number: PHHY2014JP134354

PATIENT
  Age: 29 Year
  Sex: Male
  Weight: 70 kg

DRUGS (22)
  1. CLOZARIL [Suspect]
     Active Substance: CLOZAPINE
     Dosage: 200 MG, QD
     Route: 048
     Dates: start: 20130116, end: 20130205
  2. SILECE [Concomitant]
     Active Substance: FLUNITRAZEPAM
     Dosage: 1 MG, QD
     Route: 048
     Dates: start: 20121121, end: 20121130
  3. CLOZARIL [Suspect]
     Active Substance: CLOZAPINE
     Dosage: 25 MG, QD
     Route: 048
     Dates: start: 20121115, end: 20121117
  4. CLOZARIL [Suspect]
     Active Substance: CLOZAPINE
     Dosage: 50 MG, QD
     Route: 048
     Dates: start: 20121118, end: 20121120
  5. CLOZARIL [Suspect]
     Active Substance: CLOZAPINE
     Dosage: 100 MG, QD
     Route: 048
     Dates: start: 20121124, end: 20121218
  6. AMOBAN [Concomitant]
     Active Substance: ZOPICLONE
     Indication: SCHIZOPHRENIA, DISORGANISED TYPE
     Dosage: 10 MG, QD
     Route: 048
     Dates: start: 20121211
  7. CLOZARIL [Suspect]
     Active Substance: CLOZAPINE
     Dosage: 125 MG, QD
     Route: 048
     Dates: start: 20121219, end: 20121225
  8. MAGLAX [Concomitant]
     Active Substance: MAGNESIUM OXIDE
     Dosage: 660 MG, QD
     Route: 048
     Dates: start: 20121121, end: 20121220
  9. MAGLAX [Concomitant]
     Active Substance: MAGNESIUM OXIDE
     Dosage: 1320 MG, QD
     Route: 048
     Dates: start: 20121221
  10. CLOZARIL [Suspect]
     Active Substance: CLOZAPINE
     Indication: SCHIZOPHRENIA, DISORGANISED TYPE
     Dosage: 12.5 MG, QD
     Route: 048
     Dates: start: 20121114, end: 20121114
  11. CLOZARIL [Suspect]
     Active Substance: CLOZAPINE
     Dosage: 75 MG, QD
     Route: 048
     Dates: start: 20121121, end: 20121123
  12. CLOZARIL [Suspect]
     Active Substance: CLOZAPINE
     Dosage: 175 MG, QD
     Route: 048
     Dates: start: 20130109, end: 20130115
  13. PURSENNIDE [Concomitant]
     Active Substance: SENNOSIDES A AND B
     Indication: SCHIZOPHRENIA, DISORGANISED TYPE
     Dosage: 24 MG, QD
     Route: 048
     Dates: start: 20130101
  14. DEXALTIN [Concomitant]
     Active Substance: DEXAMETHASONE
     Indication: PRODUCT USED FOR UNKNOWN INDICATION
     Dosage: UNK
     Route: 061
     Dates: start: 20130208, end: 20130214
  15. CLOZARIL [Suspect]
     Active Substance: CLOZAPINE
     Dosage: 150 MG, QD
     Route: 048
     Dates: start: 20121226, end: 20130108
  16. MAGLAX [Concomitant]
     Active Substance: MAGNESIUM OXIDE
     Indication: SCHIZOPHRENIA, DISORGANISED TYPE
     Dosage: 990 MG, QD
     Route: 048
     Dates: start: 20121114, end: 20121120
  17. SILECE [Concomitant]
     Active Substance: FLUNITRAZEPAM
     Indication: SCHIZOPHRENIA, DISORGANISED TYPE
     Dosage: 2 MG, QD
     Route: 048
     Dates: end: 20121120
  18. BENZALIN [Concomitant]
     Active Substance: NITRAZEPAM
     Indication: SCHIZOPHRENIA, DISORGANISED TYPE
     Dosage: 10 MG, QD
     Route: 048
     Dates: end: 20130131
  19. CLOZARIL [Suspect]
     Active Substance: CLOZAPINE
     Dosage: 150 MG, QD
     Route: 048
     Dates: start: 20130206
  20. TASMOLIN [Concomitant]
     Active Substance: BIPERIDEN
     Indication: SCHIZOPHRENIA, DISORGANISED TYPE
     Dosage: 3 MG, QD
     Route: 048
     Dates: start: 20121114, end: 20121120
  21. TASMOLIN [Concomitant]
     Active Substance: BIPERIDEN
     Dosage: 2 MG, QD
     Dates: start: 20121121, end: 20131220
  22. HALCION [Concomitant]
     Active Substance: TRIAZOLAM
     Indication: SCHIZOPHRENIA, DISORGANISED TYPE
     Dosage: 0.25 MG, QD
     Route: 048
     Dates: start: 20121114, end: 20121210

REACTIONS (4)
  - Hypophagia [Recovered/Resolved]
  - Ascites [Unknown]
  - Seizure [Recovered/Resolved]
  - Pyrexia [Recovered/Resolved]

NARRATIVE: CASE EVENT DATE: 20121124
